FAERS Safety Report 10381466 (Version 2)
Quarter: 2014Q3

REPORT INFORMATION
  Report Type: Spontaneous
  Country: US (occurrence: US)
  Receive Date: 20140813
  Receipt Date: 20140829
  Transmission Date: 20150326
  Serious: No
  Sender: FDA-Public Use
  Company Number: US-PFIZER INC-2014222953

PATIENT
  Age: 68 Year
  Sex: Female
  Weight: 55.7 kg

DRUGS (3)
  1. DAPTOMYCIN [Concomitant]
     Active Substance: DAPTOMYCIN
     Indication: DEVICE RELATED INFECTION
     Dosage: 330 MG, DAILY
     Dates: start: 2014
  2. NEURONTIN [Suspect]
     Active Substance: GABAPENTIN
     Indication: NEURALGIA
  3. NEURONTIN [Suspect]
     Active Substance: GABAPENTIN
     Indication: NEURALGIA
     Dosage: 125 MG, 3X/DAY
     Route: 048
     Dates: start: 20140805, end: 20140814

REACTIONS (3)
  - Off label use [Unknown]
  - Ataxia [Recovered/Resolved]
  - Muscular weakness [Recovered/Resolved]

NARRATIVE: CASE EVENT DATE: 20140805
